FAERS Safety Report 4477379-8 (Version None)
Quarter: 2004Q4

REPORT INFORMATION
  Report Type: 
  Country: None (occurrence: None)
  Receive Date: 20041013
  Receipt Date: 20040927
  Transmission Date: 20050328
  Serious: No
  Sender: FDA-Public Use
  Company Number: 2004SE03526

PATIENT
  Age: 50 Year
  Sex: Female

DRUGS (2)
  1. ZESTRIL [Suspect]
     Indication: HYPERTENSION
     Dosage: 5 MG QD PO
     Route: 048
     Dates: start: 20040621, end: 20040622
  2. XYZAL [Concomitant]

REACTIONS (3)
  - ANGIOPATHY [None]
  - ERYTHEMA [None]
  - SWELLING FACE [None]
